FAERS Safety Report 6138306-0 (Version None)
Quarter: 2009Q1

REPORT INFORMATION
  Report Type: 
  Country: None (occurrence: None)
  Receive Date: 20090331
  Receipt Date: 20090331
  Transmission Date: 20090719
  Serious: Yes (Hospitalization)
  Sender: FDA-Public Use
  Company Number: GB-PFIZER INC-2009170315

PATIENT

DRUGS (4)
  1. PREDNISOLONE STEAGLATE AND PREDNISOLONE [Suspect]
  2. DICLOFENAC SODIUM [Suspect]
  3. WARFARIN [Suspect]
  4. SIMVASTATIN [Suspect]

REACTIONS (3)
  - CONTUSION [None]
  - FALL [None]
  - INTERNATIONAL NORMALISED RATIO INCREASED [None]
